FAERS Safety Report 6594790-X (Version None)
Quarter: 2010Q1

REPORT INFORMATION
  Report Type: 
  Country: None (occurrence: None)
  Receive Date: 20100222
  Receipt Date: 20100210
  Transmission Date: 20100710
  Serious: Yes (Hospitalization, Other)
  Sender: FDA-Public Use
  Company Number: PHHY2009TW37159

PATIENT
  Sex: Male
  Weight: 39.9 kg

DRUGS (1)
  1. ICL670A ICL+DISTAB [Suspect]
     Indication: THALASSAEMIA BETA
     Dosage: 35 MG/KG/DAY
     Route: 048
     Dates: start: 20060601, end: 20090829

REACTIONS (15)
  - ABDOMINAL PAIN [None]
  - ABSCESS DRAINAGE [None]
  - ABSCESS RUPTURE [None]
  - ASCITES [None]
  - BILIARY DRAINAGE [None]
  - CATHETER PLACEMENT [None]
  - GROWTH RETARDATION [None]
  - HEPATIC NEOPLASM [None]
  - HYPOGONADISM MALE [None]
  - JAUNDICE [None]
  - LIVER ABSCESS [None]
  - PERITONITIS [None]
  - PYREXIA [None]
  - TUMOUR NECROSIS [None]
  - WHITE BLOOD CELL COUNT DECREASED [None]
